FAERS Safety Report 4686135-7 (Version None)
Quarter: 2005Q2

REPORT INFORMATION
  Report Type: 
  Country: None (occurrence: None)
  Receive Date: 20050609
  Receipt Date: 20030516
  Transmission Date: 20051028
  Serious: Yes (Death, Other)
  Sender: FDA-Public Use
  Company Number: US-MERCK-0305USA01814

PATIENT
  Age: 53 Year
  Sex: Male
  Weight: 105 kg

DRUGS (3)
  1. VIOXX [Suspect]
     Indication: BACK PAIN
     Route: 048
     Dates: start: 20010101, end: 20010501
  2. VICOPROFEN [Concomitant]
     Route: 065
     Dates: start: 20010409
  3. METHOCARBAMOL [Concomitant]
     Route: 065
     Dates: start: 20010409

REACTIONS (10)
  - BRAIN OEDEMA [None]
  - CARDIO-RESPIRATORY ARREST [None]
  - CARDIOMEGALY [None]
  - CORONARY ARTERY ATHEROSCLEROSIS [None]
  - CORONARY ARTERY THROMBOSIS [None]
  - MYOCARDIAL INFARCTION [None]
  - PULMONARY OEDEMA [None]
  - SPLENOMEGALY [None]
  - SUDDEN DEATH [None]
  - VENTRICULAR FIBRILLATION [None]
